FAERS Safety Report 6424892-X (Version None)
Quarter: 2009Q4

REPORT INFORMATION
  Report Type: 
  Country: None (occurrence: None)
  Receive Date: 20091103
  Receipt Date: 20091021
  Transmission Date: 20100525
  Serious: Yes (Hospitalization)
  Sender: FDA-Public Use
  Company Number: ES-ELI_LILLY_AND_COMPANY-ES200910005674

PATIENT
  Age: 85 Year
  Sex: Female

DRUGS (6)
  1. FORTEO [Suspect]
     Indication: OSTEOPOROSIS
     Dosage: 20 UG, UNK
     Route: 058
     Dates: start: 20090101, end: 20091015
  2. ANTIHYPERTENSIVES [Concomitant]
     Indication: HYPERTENSION
  3. ENALAPRIL [Concomitant]
  4. CIPRALEX [Concomitant]
  5. EXELON [Concomitant]
  6. NOLOTIL [Concomitant]

REACTIONS (5)
  - CEREBROVASCULAR ACCIDENT [None]
  - DISORIENTATION [None]
  - FALL [None]
  - HEAD INJURY [None]
  - PYREXIA [None]
